FAERS Safety Report 15526076 (Version 1)
Quarter: 2018Q4

REPORT INFORMATION
  Report Type: Spontaneous
  Country: US (occurrence: US)
  Receive Date: 20181018
  Receipt Date: 20181018
  Transmission Date: 20190205
  Serious: Yes (Other)
  Sender: FDA-Public Use
  Company Number: US-TEVA-2018-US-963401

PATIENT
  Age: 16 Year
  Sex: Female

DRUGS (1)
  1. JUNEL [Suspect]
     Active Substance: ETHINYL ESTRADIOL\NORETHINDRONE ACETATE
     Indication: CONTRACEPTION
     Dosage: DOSE STRENGTH: NORETHINDRONE 1.5 MG AND ETHINYLESTRADIOL 30 MCG
     Route: 065
     Dates: start: 201710

REACTIONS (1)
  - Coeliac disease [Unknown]
